FAERS Safety Report 23638076 (Version 2)
Quarter: 2024Q2

REPORT INFORMATION
  Report Type: Spontaneous
  Country: BR (occurrence: None)
  Receive Date: 20240315
  Receipt Date: 20240501
  Transmission Date: 20240716
  Serious: No
  Sender: FDA-Public Use
  Company Number: 2024A063833

PATIENT
  Sex: Female
  Weight: 65 kg

DRUGS (4)
  1. XIGDUO XR [Suspect]
     Active Substance: DAPAGLIFLOZIN PROPANEDIOL\METFORMIN HYDROCHLORIDE
     Indication: Blood glucose
     Dosage: 10/1000MG ONCE A DAY IN THE MORNING
     Route: 048
     Dates: start: 20240305, end: 20240308
  2. VITAMIN D [Concomitant]
     Active Substance: VITAMIN D NOS
     Dosage: ONCE
     Route: 048
  3. PYRIDOXINE HYDROCHLORIDE [Concomitant]
     Active Substance: PYRIDOXINE HYDROCHLORIDE
     Indication: Fatigue
     Dosage: ONCE
     Route: 048
  4. PYRIDOXINE HYDROCHLORIDE [Concomitant]
     Active Substance: PYRIDOXINE HYDROCHLORIDE
     Indication: Insomnia
     Dosage: ONCE
     Route: 048

REACTIONS (7)
  - Feeding disorder [Recovered/Resolved]
  - Gastrointestinal injury [Recovered/Resolved]
  - Vomiting [Recovered/Resolved]
  - Decreased appetite [Recovered/Resolved]
  - Malaise [Recovered/Resolved]
  - Abdominal pain [Recovered/Resolved]
  - Off label use [Recovered/Resolved]

NARRATIVE: CASE EVENT DATE: 20240306
